FAERS Safety Report 10554453 (Version 1)
Quarter: 2014Q4

REPORT INFORMATION
  Report Type: Spontaneous
  Country: US (occurrence: None)
  Receive Date: 20141029
  Receipt Date: 20141029
  Transmission Date: 20150529
  Serious: Yes (Death)
  Sender: FDA-Public Use
  Company Number: None

PATIENT
  Age: 67 Year
  Sex: Male
  Weight: 77.11 kg

DRUGS (1)
  1. CYPIONATE/TESTOSTERONE 2000 MG/10ML WATSON [Suspect]
     Active Substance: TESTOSTERONE CYPIONATE
     Indication: HYPOGONADISM
     Dosage: INTO THE MUSCLE
     Dates: start: 20140131, end: 20140531

REACTIONS (2)
  - Cardiac arrest [None]
  - Intracardiac thrombus [None]

NARRATIVE: CASE EVENT DATE: 20140603
